FAERS Safety Report 4764590-1 (Version None)
Quarter: 2005Q3

REPORT INFORMATION
  Report Type: 
  Country: None (occurrence: None)
  Receive Date: 20050906
  Receipt Date: 20050824
  Transmission Date: 20060218
  Serious: Yes (Death, Hospitalization, Other)
  Sender: FDA-Public Use
  Company Number: 2005-05-2304

PATIENT
  Age: 59 Year
  Sex: Female
  Weight: 66.6788 kg

DRUGS (6)
  1. TEMODAR [Suspect]
     Indication: GLIOBLASTOMA MULTIFORME
     Dosage: 75-200MG/M2* ORAL
     Route: 048
     Dates: start: 20050207, end: 20050101
  2. TEMODAR [Suspect]
     Indication: GLIOBLASTOMA MULTIFORME
     Dosage: 75-200MG/M2* ORAL
     Route: 048
     Dates: start: 20050101, end: 20050321
  3. TOPOTECAN [Concomitant]
  4. ZOLOFT [Concomitant]
  5. DECADRON [Concomitant]
  6. RADIATION THERAPY [Concomitant]

REACTIONS (5)
  - DIALYSIS [None]
  - DISEASE PROGRESSION [None]
  - KIDNEY INFECTION [None]
  - RENAL FAILURE [None]
  - SEPSIS [None]
